FAERS Safety Report 12471976 (Version 5)
Quarter: 2018Q3

REPORT INFORMATION
  Report Type: Report from Study
  Country: BR (occurrence: BR)
  Receive Date: 20160616
  Receipt Date: 20180926
  Transmission Date: 20181010
  Serious: Yes (Hospitalization)
  Sender: FDA-Public Use
  Company Number: PHHY2015BR157620

PATIENT
  Sex: Female
  Weight: 53 kg

DRUGS (4)
  1. EXJADE [Suspect]
     Active Substance: DEFERASIROX
     Dosage: 1 DF (10 MG/KG, 500 MG/DAY), QD (30 MINUTES BEFORE LUNCH)
     Route: 048
  2. EXJADE [Suspect]
     Active Substance: DEFERASIROX
     Indication: SICKLE CELL ANAEMIA
     Dosage: 1000 MG AND 750 MG, UNK (DEPENDED ON HOW THE IRON WAS IN HER EXAMS)
     Route: 048
     Dates: start: 2005
  3. HYDREA [Concomitant]
     Active Substance: HYDROXYUREA
     Indication: PRODUCT USED FOR UNKNOWN INDICATION
     Route: 065
  4. EXJADE [Suspect]
     Active Substance: DEFERASIROX
     Dosage: 500 MG, QD
     Route: 048

REACTIONS (14)
  - Malaise [Unknown]
  - Sickle cell anaemia with crisis [Recovering/Resolving]
  - Gait inability [Recovering/Resolving]
  - Blood iron increased [Not Recovered/Not Resolved]
  - Decreased appetite [Unknown]
  - Pain [Not Recovered/Not Resolved]
  - Muscle spasms [Unknown]
  - Haematocrit decreased [Unknown]
  - Weight decreased [Unknown]
  - Arthritis infective [Recovering/Resolving]
  - Sleep disorder due to general medical condition, insomnia type [Unknown]
  - Decreased immune responsiveness [Unknown]
  - Somnolence [Unknown]
  - Fatigue [Unknown]
